FAERS Safety Report 15868606 (Version 3)
Quarter: 2019Q3

REPORT INFORMATION
  Report Type: Spontaneous
  Country: JP (occurrence: JP)
  Receive Date: 20190125
  Receipt Date: 20190805
  Transmission Date: 20191004
  Serious: Yes (Death, Other)
  Sender: FDA-Public Use
  Company Number: JP-BRISTOL-MYERS SQUIBB COMPANY-BMS-2019-005427

PATIENT
  Age: 71 Year
  Sex: Male
  Weight: 64.7 kg

DRUGS (2)
  1. OPDIVO [Suspect]
     Active Substance: NIVOLUMAB
     Indication: METASTATIC RENAL CELL CARCINOMA
     Dosage: 240 MILLIGRAM
     Route: 041
     Dates: start: 20181227, end: 20181227
  2. YERVOY [Suspect]
     Active Substance: IPILIMUMAB
     Indication: METASTATIC RENAL CELL CARCINOMA
     Dosage: 60 MILLIGRAM
     Route: 041
     Dates: start: 20181227, end: 20181227

REACTIONS (4)
  - Cardiac arrest [Fatal]
  - Malignant neoplasm progression [Fatal]
  - Metastases to meninges [Unknown]
  - Pyrexia [Unknown]

NARRATIVE: CASE EVENT DATE: 20181229
